FAERS Safety Report 7599170-6 (Version None)
Quarter: 2011Q3

REPORT INFORMATION
  Report Type: 
  Country: None (occurrence: None)
  Receive Date: 20110711
  Receipt Date: 20110131
  Transmission Date: 20111222
  Serious: Yes (Other)
  Sender: FDA-Public Use
  Company Number: US-BAYER-2011-014804

PATIENT
  Age: 42 Year
  Sex: Female

DRUGS (1)
  1. BETASERON [Suspect]
     Indication: RELAPSING-REMITTING MULTIPLE SCLEROSIS
     Dosage: 8 MIU, QOD
     Dates: start: 19940623

REACTIONS (12)
  - CUTANEOUS LUPUS ERYTHEMATOSUS [None]
  - PHOTODERMATOSIS [None]
  - ACTINIC ELASTOSIS [None]
  - INFLAMMATION [None]
  - PRURITUS [None]
  - LOW DENSITY LIPOPROTEIN INCREASED [None]
  - SKIN FIBROSIS [None]
  - RASH [None]
  - OPTIC NERVE DISORDER [None]
  - INJECTION SITE MASS [None]
  - MILIA [None]
  - BLOOD CHOLESTEROL INCREASED [None]
